FAERS Safety Report 5994890-9 (Version None)
Quarter: 2008Q4

REPORT INFORMATION
  Report Type: 
  Country: None (occurrence: None)
  Receive Date: 20081212
  Receipt Date: 20081203
  Transmission Date: 20090506
  Serious: Yes (Death, Hospitalization)
  Sender: FDA-Public Use
  Company Number: DE-CELGENEUS-062-21880-08100957

PATIENT
  Sex: Female
  Weight: 87 kg

DRUGS (6)
  1. REVLIMID [Suspect]
     Indication: MULTIPLE MYELOMA
     Route: 048
     Dates: start: 20080922, end: 20081012
  2. DEXAMETHASONE [Concomitant]
     Indication: MULTIPLE MYELOMA
     Route: 048
     Dates: start: 20080922, end: 20080925
  3. DEXAMETHASONE [Concomitant]
     Route: 048
     Dates: start: 20080930, end: 20081003
  4. DEXAMETHASONE [Concomitant]
     Route: 048
     Dates: start: 20081008, end: 20081011
  5. DELIX [Concomitant]
     Indication: HYPERTENSION
     Route: 065
  6. TOREM [Concomitant]
     Indication: DRUG USE FOR UNKNOWN INDICATION
     Route: 065
     Dates: start: 20080925

REACTIONS (12)
  - ABASIA [None]
  - ASTHENIA [None]
  - BLOOD GLUCOSE INCREASED [None]
  - DIASTOLIC DYSFUNCTION [None]
  - HYPERTENSIVE CRISIS [None]
  - HYPOCALCAEMIA [None]
  - HYPOKALAEMIA [None]
  - METABOLIC DISORDER [None]
  - MYELOPATHY [None]
  - PULMONARY EMBOLISM [None]
  - SOMNOLENCE [None]
  - URINARY INCONTINENCE [None]
